FAERS Safety Report 21016577 (Version 1)
Quarter: 2022Q2

REPORT INFORMATION
  Report Type: Spontaneous
  Country: US (occurrence: US)
  Receive Date: 20220628
  Receipt Date: 20220628
  Transmission Date: 20220720
  Serious: Yes (Other)
  Sender: FDA-Public Use
  Company Number: US-BRISTOL-MYERS SQUIBB COMPANY-2022-059717

PATIENT
  Age: 77 Year
  Sex: Male
  Weight: 105.23 kg

DRUGS (1)
  1. REVLIMID [Suspect]
     Active Substance: LENALIDOMIDE
     Indication: Plasma cell myeloma
     Dosage: ONE CAPSULE DAILY
     Route: 048
     Dates: start: 20160201

REACTIONS (2)
  - Facial bones fracture [Unknown]
  - Fall [Unknown]
